FAERS Safety Report 4950399-2 (Version None)
Quarter: 2006Q1

REPORT INFORMATION
  Report Type: 
  Country: None (occurrence: None)
  Receive Date: 20060316
  Receipt Date: 20060307
  Transmission Date: 20060701
  Serious: Yes (Other)
  Sender: FDA-Public Use
  Company Number: 2006029988

PATIENT
  Age: 89 Year
  Sex: Male

DRUGS (2)
  1. ALDACTONE [Suspect]
     Indication: HYPERTENSION
     Dosage: ORAL
     Route: 048
  2. LASIX [Concomitant]

REACTIONS (2)
  - BLOOD POTASSIUM INCREASED [None]
  - HAEMOLYSIS [None]
